FAERS Safety Report 9281413 (Version 1)
Quarter: 2013Q2

REPORT INFORMATION
  Report Type: Spontaneous
  Country: CA (occurrence: CA)
  Receive Date: 20130509
  Receipt Date: 20130509
  Transmission Date: 20140414
  Serious: Yes (Death)
  Sender: FDA-Public Use
  Company Number: CA-BAXTER-2013BAX016819

PATIENT
  Age: 6 Year
  Sex: 0

DRUGS (3)
  1. 5% DEXTROSE INJECTION (B. BRAUN MEDICAL INC.) [Suspect]
     Indication: PRODUCT USED FOR UNKNOWN INDICATION
     Route: 042
  2. 5% DEXTROSE INJECTION (B. BRAUN MEDICAL INC.) [Suspect]
     Dosage: 600 CC Q8H
  3. 5% DEXTROSE INJECTION (B. BRAUN MEDICAL INC.) [Suspect]
     Dosage: 1000 ML

REACTIONS (11)
  - Death [Fatal]
  - Decerebrate posture [Unknown]
  - Haematemesis [Unknown]
  - Water intoxication [Unknown]
  - Grand mal convulsion [Unknown]
  - Pupil fixed [Unknown]
  - Seizure like phenomena [Unknown]
  - Bradycardia [Unknown]
  - Hyponatraemia [Unknown]
  - Incorrect drug administration rate [Unknown]
  - Brain oedema [None]
